FAERS Safety Report 8575210-2 (Version None)
Quarter: 2012Q3

REPORT INFORMATION
  Report Type: 
  Country: None (occurrence: None)
  Receive Date: 20120807
  Receipt Date: 20120727
  Transmission Date: 20120928
  Serious: Yes (Hospitalization, Disabling)
  Sender: FDA-Public Use
  Company Number: US-BAYER-2012-076785

PATIENT
  Age: 38 Year
  Sex: Female
  Weight: 73 kg

DRUGS (5)
  1. SULFAMETHOXAZOLE AND TRIMETHOPRIM [Concomitant]
     Dosage: 17-APR-2010, PRESCRIBED ANTIBIOTICS FOR POSSIBLE SINUS INFECTION WHICH SHE DID NOT TAKE
     Dates: start: 20100413
  2. YAZ [Suspect]
  3. DILANTIN [Concomitant]
  4. ALLEGRA [Concomitant]
     Route: 048
  5. DOXYCYCLINE HCL [Concomitant]
     Dosage: NOTED 17-APR-2010 PRESCRIBED ANTIBIOTICS FOR POSSIBLE SINUS INFECTION WHICH SHE DID NOT TAKE.
     Dates: start: 20100415

REACTIONS (3)
  - SUPERIOR SAGITTAL SINUS THROMBOSIS [None]
  - CEREBRAL INFARCTION [None]
  - THROMBOPHLEBITIS SUPERFICIAL [None]
